FAERS Safety Report 11008809 (Version 1)
Quarter: 2015Q2

REPORT INFORMATION
  Report Type: Spontaneous
  Country: US (occurrence: None)
  Receive Date: 20150407
  Receipt Date: 20150407
  Transmission Date: 20150821
  Serious: Yes (Other)
  Sender: FDA-Public Use
  Company Number: LH201500087

PATIENT
  Age: 31 Year
  Sex: Female

DRUGS (2)
  1. MAKENA [Suspect]
     Active Substance: HYDROXYPROGESTERONE CAPROATE
     Indication: PREMATURE DELIVERY
     Dosage: 250 MG, ONCE WEEKLY, INTRAMUSCULAR
     Route: 030
     Dates: start: 20141228, end: 201501
  2. PRENATAL VITAMINS /02014401/ (ASCORBIC ACID, CALCIUM PANTHOTHENATE, CYANOCOBALAMIN, ERGOCALCIFEROL, NICOTINAMIDE, PYRIDOXINE HYDROCHLORIDE, RETINOL PALMITATE, RIBOFLAVIN, THIAMINE MONOITRATE) [Concomitant]

REACTIONS (5)
  - Urinary retention [None]
  - Arthralgia [None]
  - Urinary tract infection [None]
  - Uterine contractions during pregnancy [None]
  - Injection site swelling [None]

NARRATIVE: CASE EVENT DATE: 201501
